FAERS Safety Report 13355475 (Version 1)
Quarter: 2017Q1

REPORT INFORMATION
  Report Type: Report from Study
  Country: None (occurrence: US)
  Receive Date: 20170321
  Receipt Date: 20170321
  Transmission Date: 20170429
  Serious: Yes (Other)
  Sender: FDA-Public Use
  Company Number: US-ABBVIE-17K-163-1911838-00

PATIENT
  Age: 70 Year
  Sex: Female

DRUGS (1)
  1. HUMIRA [Suspect]
     Active Substance: ADALIMUMAB
     Indication: COLITIS ULCERATIVE
     Route: 058
     Dates: start: 20161013

REACTIONS (3)
  - Pulmonary thrombosis [Recovering/Resolving]
  - Thrombosis [Recovering/Resolving]
  - Drug specific antibody present [Unknown]

NARRATIVE: CASE EVENT DATE: 20170214
